FAERS Safety Report 9394120 (Version 1)
Quarter: 2013Q3

REPORT INFORMATION
  Report Type: Not Available
  Country: FR (occurrence: FR)
  Receive Date: 20130710
  Receipt Date: 20130710
  Transmission Date: 20140515
  Serious: Yes (Hospitalization)
  Sender: FDA-Public Use
  Company Number: FR-RB-055878-13

PATIENT
  Sex: Male

DRUGS (1)
  1. SUBUTEX [Suspect]
     Indication: DRUG DEPENDENCE
     Route: 042
     Dates: start: 2000

REACTIONS (2)
  - Intentional drug misuse [Recovering/Resolving]
  - Abscess fungal [Recovering/Resolving]
